FAERS Safety Report 5710923-9 (Version None)
Quarter: 2008Q2

REPORT INFORMATION
  Report Type: 
  Country: None (occurrence: None)
  Receive Date: 20080421
  Receipt Date: 20080410
  Transmission Date: 20081010
  Serious: Yes (Other)
  Sender: FDA-Public Use
  Company Number: PHHY2008ES05251

PATIENT
  Age: 80 Year
  Sex: Female

DRUGS (2)
  1. RIVASTIGMINE TARTRATE [Suspect]
     Indication: DEMENTIA ALZHEIMER'S TYPE
     Dosage: 3 MG/DAILY
     Route: 048
  2. RIVASTIGMINE TARTRATE [Suspect]
     Dosage: 6MG/DAY
     Route: 048
     Dates: start: 20080301, end: 20080301

REACTIONS (1)
  - HEPATITIS TOXIC [None]
